FAERS Safety Report 6517882-X (Version None)
Quarter: 2009Q4

REPORT INFORMATION
  Report Type: 
  Country: None (occurrence: None)
  Receive Date: 20091223
  Receipt Date: 20091223
  Transmission Date: 20100525
  Serious: Yes (Hospitalization)
  Sender: FDA-Public Use
  Company Number: None

PATIENT
  Age: 52 Year
  Sex: Female
  Weight: 40 kg

DRUGS (3)
  1. CETUXIMAB [Suspect]
     Indication: SMALL CELL CARCINOMA
     Dosage: 400 MG/M2, LOADING, IV  (PATIENT HAS NOT STARTED RECEIVING TREATMENT)
     Route: 042
  2. MORPHINE [Concomitant]
  3. FENTANYL-100 [Concomitant]

REACTIONS (1)
  - NO ADVERSE EVENT [None]
